FAERS Safety Report 8880990 (Version 1)
Quarter: 2012Q4

REPORT INFORMATION
  Report Type: 
  Country: BR (occurrence: BR)
  Receive Date: 20121101
  Receipt Date: 20121101
  Transmission Date: 20130627
  Serious: Yes (Other)
  Sender: FDA-Public Use
  Company Number: BR-PFIZER INC-2012267992

PATIENT
  Age: 48 Year
  Sex: Male

DRUGS (3)
  1. LYRICA [Suspect]
     Dosage: 300 mg (4 capsules of 75 mg), 2x/day
  2. BACLOFEN [Concomitant]
     Dosage: strength 30mg
  3. CODEINE [Concomitant]
     Dosage: strength 30mg

REACTIONS (10)
  - Confusional state [Unknown]
  - Hypersensitivity [Unknown]
  - Dyspnoea [Unknown]
  - Swelling face [Unknown]
  - Swelling [Unknown]
  - Malaise [Unknown]
  - Headache [Unknown]
  - Cold sweat [Unknown]
  - Somnolence [Unknown]
  - Dizziness [Unknown]
